FAERS Safety Report 18269343 (Version 1)
Quarter: 2020Q3

REPORT INFORMATION
  Report Type: Spontaneous
  Country: FR (occurrence: FR)
  Receive Date: 20200915
  Receipt Date: 20200915
  Transmission Date: 20201103
  Serious: Yes (Hospitalization)
  Sender: FDA-Public Use
  Company Number: FR-JAZZ-2020-FR-005270

PATIENT

DRUGS (1)
  1. KIDROLASE [Suspect]
     Active Substance: ASPARAGINASE
     Indication: T-CELL TYPE ACUTE LEUKAEMIA
     Dosage: 12200 INTERNATIONAL UNIT
     Route: 042
     Dates: start: 20170807, end: 20170819

REACTIONS (2)
  - Venous thrombosis [Recovered/Resolved with Sequelae]
  - Acquired antithrombin III deficiency [Not Recovered/Not Resolved]

NARRATIVE: CASE EVENT DATE: 20170809
